FAERS Safety Report 11788736 (Version 1)
Quarter: 2015Q4

REPORT INFORMATION
  Report Type: Spontaneous
  Country: None (occurrence: None)
  Receive Date: 20151130
  Receipt Date: 20151130
  Transmission Date: 20160305
  Serious: No
  Sender: FDA-Public Use
  Company Number: None

PATIENT
  Age: 29 Year
  Sex: Female
  Weight: 68.04 kg

DRUGS (3)
  1. PERCOCET [Suspect]
     Active Substance: ACETAMINOPHEN\OXYCODONE HYDROCHLORIDE
     Indication: AFTERBIRTH PAIN
     Route: 048
     Dates: start: 20150601, end: 20150602
  2. PRENATAL [Concomitant]
     Active Substance: VITAMINS
  3. PERCOCET [Suspect]
     Active Substance: ACETAMINOPHEN\OXYCODONE HYDROCHLORIDE
     Indication: CAESAREAN SECTION
     Route: 048
     Dates: start: 20150601, end: 20150602

REACTIONS (1)
  - Hallucination [None]

NARRATIVE: CASE EVENT DATE: 20150602
